FAERS Safety Report 8536599-3 (Version None)
Quarter: 2012Q2

REPORT INFORMATION
  Report Type: 
  Country: None (occurrence: None)
  Receive Date: 20120412
  Receipt Date: 20090504
  Transmission Date: 20120825
  Serious: Yes (Other)
  Sender: FDA-Public Use
  Company Number: PHEH2009US18929

PATIENT
  Age: 40 Year
  Sex: Female

DRUGS (3)
  1. RADIATION (NO INGREDIENTS/SUBSTANCES) [Concomitant]
  2. AREDIA [Suspect]
     Dosage: 90 MG MONTHLY,INTRAVENOUS
     Route: 042
     Dates: start: 19980101
  3. CHEMOTHERAPEUTICS NOS (NO INGREDIENTS/SUBSTANCES) [Concomitant]

REACTIONS (7)
  - PARAESTHESIA [None]
  - LIVER FUNCTION TEST ABNORMAL [None]
  - VISION BLURRED [None]
  - BONE PAIN [None]
  - THROMBOCYTOPENIA [None]
  - NEOPLASM MALIGNANT [None]
  - EPIGASTRIC DISCOMFORT [None]
